FAERS Safety Report 7081414-0 (Version None)
Quarter: 2010Q4

REPORT INFORMATION
  Report Type: 
  Country: None (occurrence: None)
  Receive Date: 20101102
  Receipt Date: 20101102
  Transmission Date: 20110411
  Serious: Yes (Hospitalization)
  Sender: FDA-Public Use
  Company Number: None

PATIENT
  Age: 77 Year
  Sex: Female
  Weight: 85 kg

DRUGS (10)
  1. DIGOXIN [Suspect]
     Indication: ATRIAL FIBRILLATION
     Dosage: 125 MCG DAILY PO
     Route: 048
  2. DRONEDARONE HCL [Suspect]
     Indication: ATRIAL FIBRILLATION
     Dosage: 400 MG BID PO
     Route: 048
     Dates: start: 20100601
  3. DILTIAZEM [Concomitant]
  4. METROPOLOL [Concomitant]
  5. FUROSEMIDE [Concomitant]
  6. SIMVASTATIN [Concomitant]
  7. ZOLPIDEM [Concomitant]
  8. ALLOPURINOL [Concomitant]
  9. WARFARIN [Concomitant]
  10. FLUTICASONE/SALMETEROL [Concomitant]

REACTIONS (9)
  - CARDIOACTIVE DRUG LEVEL INCREASED [None]
  - DEHYDRATION [None]
  - DIVERTICULITIS [None]
  - GASTROENTERITIS [None]
  - INTERNATIONAL NORMALISED RATIO INCREASED [None]
  - NAUSEA [None]
  - RENAL FAILURE ACUTE [None]
  - THERAPEUTIC AGENT TOXICITY [None]
  - VOMITING [None]
